FAERS Safety Report 13306530 (Version 2)
Quarter: 2017Q2

REPORT INFORMATION
  Report Type: Spontaneous
  Country: US (occurrence: US)
  Receive Date: 20170308
  Receipt Date: 20170403
  Transmission Date: 20170830
  Serious: Yes (Death, Other)
  Sender: FDA-Public Use
  Company Number: US-009507513-1703USA000939

PATIENT
  Age: 69 Year
  Sex: Female

DRUGS (4)
  1. AZTREONAM. [Concomitant]
     Active Substance: AZTREONAM
     Indication: ENDOCARDITIS
  2. ANIDULAFUNGIN [Concomitant]
     Active Substance: ANIDULAFUNGIN
     Indication: ENDOCARDITIS
  3. DOXYCYCLINE. [Concomitant]
     Active Substance: DOXYCYCLINE
     Indication: ENDOCARDITIS
  4. CUBICIN [Suspect]
     Active Substance: DAPTOMYCIN
     Indication: ENDOCARDITIS

REACTIONS (2)
  - Endocarditis [Fatal]
  - Drug ineffective [Fatal]
